FAERS Safety Report 14300366 (Version 2)
Quarter: 2018Q1

REPORT INFORMATION
  Report Type: Spontaneous
  Country: IT (occurrence: IT)
  Receive Date: 20171219
  Receipt Date: 20180105
  Transmission Date: 20180509
  Serious: Yes (Other)
  Sender: FDA-Public Use
  Company Number: IT-AUROBINDO-AUR-APL-2017-46091

PATIENT
  Age: 49 Year
  Sex: Female

DRUGS (7)
  1. FLUDARABINA TEVA [Suspect]
     Active Substance: FLUDARABINE PHOSPHATE
     Indication: ACUTE MYELOID LEUKAEMIA
     Dosage: 50 MG, CYCLE
     Route: 042
     Dates: start: 20171028, end: 20171030
  2. FLUDARABINA TEVA [Suspect]
     Active Substance: FLUDARABINE PHOSPHATE
     Indication: ACUTE MYELOID LEUKAEMIA
     Dosage: 50 MG, CYCLICAL
     Route: 042
     Dates: start: 20171028
  3. ONDANSETRON [Suspect]
     Active Substance: ONDANSETRON
     Indication: PRODUCT USED FOR UNKNOWN INDICATION
     Dosage: 1 DF, CYCLE
     Route: 042
     Dates: start: 20171028, end: 20171030
  4. ONKOTRONE [Suspect]
     Active Substance: MITOXANTRONE HYDROCHLORIDE
     Indication: ACUTE MYELOID LEUKAEMIA
     Dosage: 17 MG, CYCLICAL
     Route: 042
     Dates: start: 20171028
  5. CITARABINA ACCORD [Suspect]
     Active Substance: CYTARABINE
     Indication: ACUTE MYELOID LEUKAEMIA
     Dosage: CYCLICAL
     Route: 042
     Dates: start: 20171028
  6. CITARABINA ACCORD [Suspect]
     Active Substance: CYTARABINE
     Dosage: 3.5 G, CYCLE
     Route: 042
     Dates: start: 20171028, end: 20171030
  7. ONKOTRONE [Suspect]
     Active Substance: MITOXANTRONE HYDROCHLORIDE
     Indication: ACUTE MYELOID LEUKAEMIA
     Dosage: 17 MG, CYCLE
     Route: 042
     Dates: start: 20171028, end: 20171030

REACTIONS (1)
  - Pancytopenia [Not Recovered/Not Resolved]

NARRATIVE: CASE EVENT DATE: 20171030
